FAERS Safety Report 23305309 (Version 1)
Quarter: 2023Q4

REPORT INFORMATION
  Report Type: Spontaneous
  Country: IT (occurrence: IT)
  Receive Date: 20231218
  Receipt Date: 20231218
  Transmission Date: 20240110
  Serious: Yes (Death, Life-Threatening, Other)
  Sender: FDA-Public Use
  Company Number: IT-MLMSERVICE-20231128-4694834-1

PATIENT
  Age: 56 Year
  Sex: Male
  Weight: 73 kg

DRUGS (6)
  1. AMLODIPINE [Interacting]
     Active Substance: AMLODIPINE BESYLATE
     Indication: Product used for unknown indication
     Dosage: TOTAL (ONE BOTTLE OF AMLODIPINE (AML) (14 TABLETS PER BOTTLE AT 10 MG EACH))
     Route: 065
  2. CARVEDILOL [Interacting]
     Active Substance: CARVEDILOL
     Indication: Product used for unknown indication
     Dosage: TOTAL TWO BOTTLES OF CARVEDILOL (CRVD) (30 TABLETS PER BOTTLE AT 25 MG EACH)
     Route: 065
  3. DOXAZOSIN [Interacting]
     Active Substance: DOXAZOSIN MESYLATE
     Indication: Product used for unknown indication
     Dosage: TOTAL A SECOND BOTTLE OF DOXAZOSIN (DOX) (20 TABLETS PER BOTTLE AT 4 MG EACH)
     Route: 065
  4. DOXAZOSIN [Interacting]
     Active Substance: DOXAZOSIN MESYLATE
     Indication: Product used for unknown indication
     Dosage: TOTAL ONE BOTTLE OF DOXAZOSIN (DOX) (30 TABLETS PER BOTTLE AT 2 MG EACH)
     Route: 065
  5. CLONAZEPAM [Concomitant]
     Active Substance: CLONAZEPAM
     Indication: Product used for unknown indication
     Dosage: UNK
     Route: 065
  6. LACOSAMIDE [Concomitant]
     Active Substance: LACOSAMIDE
     Indication: Product used for unknown indication
     Dosage: UNK
     Route: 065

REACTIONS (9)
  - Petechiae [Fatal]
  - Coronary artery stenosis [Fatal]
  - Arteriosclerosis coronary artery [Fatal]
  - Pulmonary oedema [Fatal]
  - Brain oedema [Fatal]
  - Visceral congestion [Fatal]
  - Myocardial fibrosis [Fatal]
  - Drug interaction [Fatal]
  - Intentional overdose [Fatal]
